FAERS Safety Report 11027812 (Version 2)
Quarter: 2015Q2

REPORT INFORMATION
  Report Type: Spontaneous
  Country: DE (occurrence: DE)
  Receive Date: 20150414
  Receipt Date: 20150513
  Transmission Date: 20150821
  Serious: Yes (Death, Other)
  Sender: FDA-Public Use
  Company Number: DE-BAXTER-2015BAX019060

PATIENT
  Age: 66 Year
  Sex: Male
  Weight: 112 kg

DRUGS (6)
  1. NOREPINEPHRINE [Concomitant]
     Active Substance: NOREPINEPHRINE\NOREPINEPHRINE BITARTRATE
     Indication: PRODUCT USED FOR UNKNOWN INDICATION
     Route: 042
  2. ISOTONE KOCHSALZL?SUNG BAXTER [Suspect]
     Active Substance: SODIUM CHLORIDE
     Indication: DEVICE PRIMING
     Route: 065
     Dates: start: 20150304
  3. CALCIUM GLUCONATE. [Suspect]
     Active Substance: CALCIUM GLUCONATE
     Indication: PRODUCT USED FOR UNKNOWN INDICATION
     Route: 042
  4. PHOXILIUM [Suspect]
     Active Substance: CALCIUM CHLORIDE\MAGNESIUM CHLORIDE\POTASSIUM CHLORIDE\SODIUM BICARBONATE\SODIUM CHLORIDE\SODIUM PHOSPHATE, DIBASIC
     Indication: RENAL REPLACEMENT THERAPY
  5. PRISMASOL 2 [Suspect]
     Active Substance: CALCIUM CHLORIDE\DEXTROSE MONOHYDRATE\LACTIC ACID\MAGNESIUM CHLORIDE\POTASSIUM CHLORIDE\SODIUM BICARBONATE\SODIUM CHLORIDE
     Indication: BLOOD POTASSIUM INCREASED
     Route: 010
  6. PHOXILIUM [Suspect]
     Active Substance: CALCIUM CHLORIDE\MAGNESIUM CHLORIDE\POTASSIUM CHLORIDE\SODIUM BICARBONATE\SODIUM CHLORIDE\SODIUM PHOSPHATE, DIBASIC
     Indication: SEPSIS
     Route: 010
     Dates: start: 20150304, end: 20150327

REACTIONS (19)
  - Sepsis [Fatal]
  - Blood alkaline phosphatase increased [None]
  - Aspartate aminotransferase increased [None]
  - Multi-organ failure [Fatal]
  - Metabolic acidosis [Unknown]
  - Hyperkalaemia [Unknown]
  - Hepatic enzyme increased [Unknown]
  - Platelet count increased [None]
  - Blood magnesium increased [None]
  - Alanine aminotransferase increased [None]
  - Haemoglobin decreased [None]
  - Blood potassium increased [Unknown]
  - Coagulopathy [Unknown]
  - Blood creatinine increased [None]
  - Gamma-glutamyltransferase increased [None]
  - Fibrin D dimer increased [None]
  - Blood bilirubin increased [None]
  - Activated partial thromboplastin time prolonged [None]
  - Blood urea increased [None]

NARRATIVE: CASE EVENT DATE: 20150326
